FAERS Safety Report 21301739 (Version 2)
Quarter: 2022Q4

REPORT INFORMATION
  Report Type: Spontaneous
  Country: US (occurrence: US)
  Receive Date: 20220907
  Receipt Date: 20221107
  Transmission Date: 20230113
  Serious: No
  Sender: FDA-Public Use
  Company Number: US-JNJFOC-20220843983

PATIENT
  Age: 35 Month
  Sex: Female
  Weight: 12.712 kg

DRUGS (1)
  1. MOTRIN INFANTS [Suspect]
     Active Substance: IBUPROFEN
     Indication: Pyrexia
     Dosage: 1.875 ML JUST ONE TIME
     Route: 048
     Dates: start: 20220805, end: 20220805

REACTIONS (2)
  - Drug hypersensitivity [Recovered/Resolved]
  - Product administered to patient of inappropriate age [Unknown]

NARRATIVE: CASE EVENT DATE: 20220805
